FAERS Safety Report 21194013 (Version 3)
Quarter: 2022Q3

REPORT INFORMATION
  Report Type: Report from Study
  Country: TW (occurrence: TW)
  Receive Date: 20220810
  Receipt Date: 20220908
  Transmission Date: 20221027
  Serious: Yes (Hospitalization)
  Sender: FDA-Public Use
  Company Number: TW-NOVARTISPH-NVSC2022TW180233

PATIENT
  Age: 3 Year
  Sex: Male
  Weight: 9 kg

DRUGS (2)
  1. ONASEMNOGENE ABEPARVOVEC [Suspect]
     Active Substance: ONASEMNOGENE ABEPARVOVEC
     Indication: Spinal muscular atrophy
     Dosage: 5.5 ML (8 VIAL)
     Route: 042
     Dates: start: 20200307
  2. ONASEMNOGENE ABEPARVOVEC [Suspect]
     Active Substance: ONASEMNOGENE ABEPARVOVEC
     Dosage: 8.3 ML (1 VIAL)
     Route: 042
     Dates: start: 20200307

REACTIONS (3)
  - Coronavirus infection [Unknown]
  - Pyrexia [Recovering/Resolving]
  - Gastrointestinal haemorrhage [Recovered/Resolved]

NARRATIVE: CASE EVENT DATE: 20220803
